FAERS Safety Report 9189335 (Version 3)
Quarter: 2013Q2

REPORT INFORMATION
  Report Type: Report from Study
  Country: US (occurrence: US)
  Receive Date: 20130326
  Receipt Date: 20130529
  Transmission Date: 20140414
  Serious: Yes (Other)
  Sender: FDA-Public Use
  Company Number: US-JNJFOC-20130309642

PATIENT
  Age: 72 Year
  Sex: Female

DRUGS (1)
  1. REMICADE [Suspect]
     Indication: COLITIS ULCERATIVE
     Route: 042
     Dates: start: 201212

REACTIONS (18)
  - Pain in extremity [Unknown]
  - Haemorrhage [Not Recovered/Not Resolved]
  - Surgery [Not Recovered/Not Resolved]
  - Temporomandibular joint syndrome [Unknown]
  - Hypersensitivity [Unknown]
  - Immune system disorder [Unknown]
  - Frequent bowel movements [Unknown]
  - Dysgeusia [Unknown]
  - Malaise [Unknown]
  - Infusion related reaction [Unknown]
  - Hair texture abnormal [Unknown]
  - Rash [Not Recovered/Not Resolved]
  - Abdominal pain [Not Recovered/Not Resolved]
  - Alopecia [Not Recovered/Not Resolved]
  - Productive cough [Unknown]
  - Mass [Unknown]
  - Gingival bleeding [Unknown]
  - Discomfort [Unknown]
